FAERS Safety Report 6934954-6 (Version None)
Quarter: 2010Q3

REPORT INFORMATION
  Report Type: 
  Country: None (occurrence: None)
  Receive Date: 20100821
  Receipt Date: 20100813
  Transmission Date: 20110219
  Serious: Yes (Death, Hospitalization)
  Sender: FDA-Public Use
  Company Number: PHHY2010US53525

PATIENT
  Sex: Female
  Weight: 70 kg

DRUGS (1)
  1. EXJADE [Suspect]
     Indication: IRON OVERLOAD
     Dosage: UNK
     Dates: start: 20100618

REACTIONS (4)
  - PANCYTOPENIA [None]
  - PULMONARY EMBOLISM [None]
  - PYREXIA [None]
  - SEPSIS [None]
